FAERS Safety Report 6010557-5 (Version None)
Quarter: 2008Q4

REPORT INFORMATION
  Report Type: 
  Country: None (occurrence: None)
  Receive Date: 20081216
  Receipt Date: 20081205
  Transmission Date: 20090506
  Serious: Yes (Other)
  Sender: FDA-Public Use
  Company Number: GXKR2008GB11664

PATIENT

DRUGS (3)
  1. VALPROIC ACID [Suspect]
     Dosage: TRANSPLACENTAL
     Route: 064
  2. LAMOTRIGINE [Suspect]
     Dosage: TRANSPLACENTAL
     Route: 064
  3. FOLIC ACID [Concomitant]

REACTIONS (2)
  - AUTISM SPECTRUM DISORDER [None]
  - MATERNAL DRUGS AFFECTING FOETUS [None]
